FAERS Safety Report 16343442 (Version 1)
Quarter: 2019Q2

REPORT INFORMATION
  Report Type: Spontaneous
  Country: CN (occurrence: CN)
  Receive Date: 20190522
  Receipt Date: 20190522
  Transmission Date: 20190711
  Serious: Yes (Other)
  Sender: FDA-Public Use
  Company Number: CN-ROCHE-2316708

PATIENT
  Age: 35 Year
  Sex: Female

DRUGS (14)
  1. AVASTIN [Suspect]
     Active Substance: BEVACIZUMAB
     Dosage: 4 CYCLES
     Route: 065
     Dates: start: 20141012, end: 20141204
  2. LEUCOVORIN CALCIUM. [Concomitant]
     Active Substance: LEUCOVORIN CALCIUM
     Indication: COLON CANCER
     Route: 065
     Dates: start: 201310, end: 201506
  3. 5-FLUOROURACIL [FLUOROURACIL] [Concomitant]
     Active Substance: FLUOROURACIL
     Indication: COLON CANCER
     Route: 065
     Dates: start: 201310, end: 201506
  4. AVASTIN [Suspect]
     Active Substance: BEVACIZUMAB
     Dosage: 2 CYCLES
     Route: 065
     Dates: start: 201405, end: 201406
  5. AVASTIN [Suspect]
     Active Substance: BEVACIZUMAB
     Dosage: 4 CYCLES
     Route: 065
     Dates: start: 201504, end: 201506
  6. AVASTIN [Suspect]
     Active Substance: BEVACIZUMAB
     Dosage: 4 CYCLES
     Route: 065
     Dates: start: 201408, end: 201410
  7. AVASTIN [Suspect]
     Active Substance: BEVACIZUMAB
     Dosage: 4 CYCLES
     Route: 065
     Dates: start: 201406, end: 201408
  8. LEUCOVORIN CALCIUM. [Concomitant]
     Active Substance: LEUCOVORIN CALCIUM
     Indication: METASTASES TO LIVER
  9. AVASTIN [Suspect]
     Active Substance: BEVACIZUMAB
     Indication: METASTASES TO LIVER
     Dosage: 5 CYCLES
     Route: 065
     Dates: start: 201402, end: 201405
  10. OXALIPLATIN. [Concomitant]
     Active Substance: OXALIPLATIN
     Indication: COLON CANCER
     Route: 065
     Dates: start: 201310, end: 201502
  11. AVASTIN [Suspect]
     Active Substance: BEVACIZUMAB
     Indication: COLON CANCER
     Dosage: 4 CYCLES
     Route: 065
     Dates: start: 201310, end: 201311
  12. AVASTIN [Suspect]
     Active Substance: BEVACIZUMAB
     Dosage: 4 CYCLES
     Route: 065
     Dates: start: 201501, end: 201502
  13. OXALIPLATIN. [Concomitant]
     Active Substance: OXALIPLATIN
     Indication: METASTASES TO LIVER
  14. IRINOTECAN [Concomitant]
     Active Substance: IRINOTECAN
     Indication: COLON CANCER
     Route: 065
     Dates: start: 201504, end: 201506

REACTIONS (5)
  - Pelvic fluid collection [Unknown]
  - Uterine leiomyoma [Unknown]
  - Biliary dilatation [Unknown]
  - Soft tissue disorder [Unknown]
  - Metabolic disorder [Unknown]
